FAERS Safety Report 9333511 (Version 1)
Quarter: 2013Q2

REPORT INFORMATION
  Report Type: Spontaneous
  Country: US (occurrence: US)
  Receive Date: 20130606
  Receipt Date: 20130606
  Transmission Date: 20140414
  Serious: No
  Sender: FDA-Public Use
  Company Number: US-AMGEN-USASP2012076810

PATIENT
  Sex: Male

DRUGS (2)
  1. XGEVA [Suspect]
     Indication: BONE DISORDER
     Dosage: UNK
     Dates: start: 20121116
  2. XGEVA [Suspect]
     Indication: METASTASES TO BONE

REACTIONS (4)
  - Gait disturbance [Unknown]
  - Muscle spasms [Unknown]
  - Heart rate increased [Unknown]
  - Dyspnoea [Unknown]
